FAERS Safety Report 7978932-7 (Version None)
Quarter: 2011Q4

REPORT INFORMATION
  Report Type: 
  Country: None (occurrence: None)
  Receive Date: 20111214
  Receipt Date: 20111209
  Transmission Date: 20120403
  Serious: Yes (Hospitalization, Other)
  Sender: FDA-Public Use
  Company Number: FR-PFIZER INC-K201100875

PATIENT
  Age: 52 Year
  Sex: Male

DRUGS (6)
  1. SOLIAN [Concomitant]
  2. ALDACTONE [Concomitant]
  3. POTASSIUM CHLORIDE [Concomitant]
  4. NEXIUM [Concomitant]
  5. RAMIPRIL [Suspect]
     Dosage: 10 MG, 1X/DAY
     Route: 048
     Dates: end: 20110622
  6. ASPIRIN [Concomitant]

REACTIONS (2)
  - CARDIAC FAILURE [None]
  - ANGIOEDEMA [None]
